FAERS Safety Report 6762364-3 (Version None)
Quarter: 2010Q2

REPORT INFORMATION
  Report Type: 
  Country: None (occurrence: None)
  Receive Date: 20100609
  Receipt Date: 20100601
  Transmission Date: 20101027
  Serious: Yes (Other)
  Sender: FDA-Public Use
  Company Number: BR-SANOFI-AVENTIS-2010SA015301

PATIENT
  Age: 54 Year
  Sex: Female
  Weight: 71 kg

DRUGS (7)
  1. LANTUS [Suspect]
     Indication: TYPE 2 DIABETES MELLITUS
     Route: 058
  2. LANTUS [Suspect]
     Route: 058
     Dates: start: 20100101, end: 20100101
  3. LANTUS [Suspect]
     Route: 058
     Dates: start: 20100101
  4. PLAVIX [Concomitant]
     Indication: DRUG USE FOR UNKNOWN INDICATION
     Route: 048
  5. PURAN T4 [Concomitant]
     Indication: THYROID DISORDER
     Route: 048
  6. PROCRIT [Concomitant]
     Indication: ANAEMIA
     Route: 048
  7. NOVORAPID [Concomitant]
     Indication: TYPE 2 DIABETES MELLITUS
     Route: 058

REACTIONS (10)
  - ANAEMIA [None]
  - BLOOD CREATININE INCREASED [None]
  - BLOOD GLUCOSE INCREASED [None]
  - BLOOD UREA INCREASED [None]
  - DRUG INEFFECTIVE [None]
  - EYE HAEMORRHAGE [None]
  - EYE SWELLING [None]
  - GLAUCOMA [None]
  - HYPOGLYCAEMIA [None]
  - PRODUCT QUALITY ISSUE [None]
